FAERS Safety Report 19502024 (Version 2)
Quarter: 2023Q1

REPORT INFORMATION
  Report Type: Report from Study
  Country: DE (occurrence: DE)
  Receive Date: 20210707
  Receipt Date: 20230331
  Transmission Date: 20230418
  Serious: Yes (Life-Threatening, Hospitalization)
  Sender: FDA-Public Use
  Company Number: DE-NOVARTISPH-NVSC2020DE307788

PATIENT
  Age: 66 Year
  Sex: Male
  Weight: 76.8 kg

DRUGS (51)
  1. CYTARABINE [Suspect]
     Active Substance: CYTARABINE
     Indication: Plasma cell myeloma refractory
     Dosage: NO TREATMENT
     Route: 065
  2. CYTARABINE [Suspect]
     Active Substance: CYTARABINE
     Dosage: 7720 MG, BID
     Route: 042
     Dates: start: 20201114
  3. DEXAMETHASONE [Suspect]
     Active Substance: DEXAMETHASONE
     Indication: Plasma cell myeloma refractory
     Dosage: NO TREATMENT
     Route: 065
  4. DEXAMETHASONE [Suspect]
     Active Substance: DEXAMETHASONE
     Dosage: 120 MG, QD
     Route: 048
     Dates: start: 20201113
  5. RITUXIMAB [Suspect]
     Active Substance: RITUXIMAB
     Indication: Plasma cell myeloma refractory
     Dosage: 723.75 MG, ONCE/SINGLE
     Route: 042
     Dates: start: 20201111
  6. TORSEMIDE [Concomitant]
     Active Substance: TORSEMIDE
     Indication: Hypertension
     Dosage: UNK
     Route: 065
     Dates: start: 20201030, end: 20201110
  7. PANTOPRAZOLE SODIUM [Concomitant]
     Active Substance: PANTOPRAZOLE SODIUM
     Indication: Gastrointestinal disorder prophylaxis
     Dosage: UNK
     Route: 065
     Dates: start: 20201028, end: 20201111
  8. PANTOPRAZOLE SODIUM [Concomitant]
     Active Substance: PANTOPRAZOLE SODIUM
     Dosage: UNK
     Route: 065
     Dates: start: 20201113, end: 20201116
  9. RAMIPRIL [Concomitant]
     Active Substance: RAMIPRIL
     Indication: Hypertension
     Dosage: UNK
     Route: 065
     Dates: start: 20201031, end: 20201106
  10. PIRITRAMIDE [Concomitant]
     Active Substance: PIRITRAMIDE
     Indication: Pain prophylaxis
     Dosage: UNK
     Route: 065
     Dates: start: 20201105, end: 20201105
  11. JONOSTERIL [Concomitant]
     Indication: Prophylaxis
     Dosage: UNK
     Route: 065
     Dates: start: 20201105, end: 20201105
  12. JONOSTERIL [Concomitant]
     Dosage: UNK
     Route: 065
     Dates: start: 20201110, end: 20201111
  13. JONOSTERIL [Concomitant]
     Dosage: UNK
     Route: 065
     Dates: start: 20201112, end: 20201112
  14. JONOSTERIL [Concomitant]
     Dosage: UNK
     Route: 065
     Dates: start: 20201114, end: 20201114
  15. JONOSTERIL [Concomitant]
     Dosage: UNK
     Route: 065
     Dates: start: 20201115, end: 20201116
  16. NEULASTA [Concomitant]
     Active Substance: PEGFILGRASTIM
     Indication: Prophylaxis
     Dosage: UNK
     Route: 065
     Dates: start: 20201116, end: 20201116
  17. PARACODIN [Concomitant]
     Indication: Cough
     Dosage: UNK
     Route: 065
     Dates: start: 20201110, end: 20201111
  18. NOVALGIN [Concomitant]
     Indication: Abdominal pain
     Dosage: UNK
     Route: 065
     Dates: start: 20201111, end: 20201111
  19. BUTYLSCOPOLAMINE BROMIDE [Concomitant]
     Active Substance: BUTYLSCOPOLAMINE BROMIDE
     Indication: Abdominal pain
     Dosage: UNK
     Route: 065
     Dates: start: 20201111, end: 20201111
  20. ACETAMINOPHEN [Concomitant]
     Active Substance: ACETAMINOPHEN
     Indication: Premedication
     Dosage: UNK
     Route: 065
     Dates: start: 20201111, end: 20201111
  21. FUROSEMIDE [Concomitant]
     Active Substance: FUROSEMIDE
     Indication: Dyspnoea
     Dosage: UNK
     Route: 065
     Dates: start: 20201110, end: 20201110
  22. FUROSEMIDE [Concomitant]
     Active Substance: FUROSEMIDE
     Indication: Anuria
     Dosage: UNK
     Route: 065
     Dates: start: 20201112, end: 20201112
  23. FUROSEMIDE [Concomitant]
     Active Substance: FUROSEMIDE
     Dosage: UNK
     Route: 065
     Dates: start: 20201114, end: 20201115
  24. FUROSEMIDE [Concomitant]
     Active Substance: FUROSEMIDE
     Dosage: UNK
     Route: 065
     Dates: start: 20201116, end: 20201116
  25. EMEND [Concomitant]
     Active Substance: APREPITANT
     Indication: Prophylaxis of nausea and vomiting
     Dosage: UNK
     Route: 065
     Dates: start: 20201111, end: 20201111
  26. EMEND [Concomitant]
     Active Substance: APREPITANT
     Dosage: UNK
     Route: 065
     Dates: start: 20201113, end: 20201113
  27. EMEND [Concomitant]
     Active Substance: APREPITANT
     Dosage: UNK
     Route: 065
     Dates: start: 20201114, end: 20201114
  28. ONDANSETRON [Concomitant]
     Active Substance: ONDANSETRON
     Indication: Prophylaxis
     Dosage: UNK
     Route: 065
     Dates: start: 20201113, end: 20201114
  29. ONDANSETRON [Concomitant]
     Active Substance: ONDANSETRON
     Indication: Prophylaxis of nausea and vomiting
     Dosage: UNK
     Route: 065
     Dates: start: 20201115, end: 20201115
  30. ONDANSETRON [Concomitant]
     Active Substance: ONDANSETRON
     Dosage: UNK
     Route: 065
     Dates: start: 20201116, end: 20201116
  31. DEXAMETHASONE SODIUM PHOSPHATE [Concomitant]
     Active Substance: DEXAMETHASONE SODIUM PHOSPHATE
     Indication: Eye disorder prophylaxis
     Dosage: UNK
     Route: 065
     Dates: start: 20201114, end: 20201114
  32. COTRIM [Concomitant]
     Active Substance: SULFAMETHOXAZOLE\TRIMETHOPRIM
     Indication: Infection prophylaxis
     Dosage: UNK
     Route: 065
     Dates: start: 20201116, end: 20201118
  33. ALLOPURINOL [Concomitant]
     Active Substance: ALLOPURINOL
     Indication: Prophylaxis
     Dosage: UNK
     Route: 065
     Dates: start: 20201113, end: 20201114
  34. RASBURICASE [Concomitant]
     Active Substance: RASBURICASE
     Indication: Prophylaxis
     Dosage: UNK
     Route: 065
     Dates: start: 20201114, end: 20201114
  35. METOPROLOL [Concomitant]
     Active Substance: METOPROLOL
     Indication: Tachyarrhythmia
     Dosage: UNK
     Route: 065
     Dates: start: 20201116, end: 20201116
  36. DIMETHINDENE [Concomitant]
     Active Substance: DIMETHINDENE
     Indication: Premedication
     Dosage: UNK
     Route: 065
     Dates: start: 20201111, end: 20201111
  37. DIMETHINDENE [Concomitant]
     Active Substance: DIMETHINDENE
     Indication: Dyspnoea
     Dosage: UNK
     Route: 065
     Dates: start: 20201116, end: 20201116
  38. PREDNISOLONE SODIUM SUCCINATE [Concomitant]
     Active Substance: PREDNISOLONE SODIUM SUCCINATE
     Indication: Premedication
     Dosage: UNK
     Route: 065
     Dates: start: 20201110, end: 20201111
  39. PREDNISOLONE SODIUM SUCCINATE [Concomitant]
     Active Substance: PREDNISOLONE SODIUM SUCCINATE
     Indication: Dyspnoea
     Dosage: UNK
     Route: 065
     Dates: start: 20201111, end: 20201111
  40. PREDNISOLONE SODIUM SUCCINATE [Concomitant]
     Active Substance: PREDNISOLONE SODIUM SUCCINATE
     Dosage: UNK
     Route: 065
     Dates: start: 20201116, end: 20201116
  41. CIMETIDIN [Concomitant]
     Indication: Premedication
     Dosage: UNK
     Route: 065
     Dates: start: 20201111, end: 20201111
  42. MANNITOL [Concomitant]
     Active Substance: MANNITOL
     Indication: Premedication
     Dosage: UNK
     Route: 065
     Dates: start: 20201113, end: 20201113
  43. DIGOXIN [Concomitant]
     Active Substance: DIGOXIN
     Indication: Tachyarrhythmia
     Dosage: UNK
     Route: 065
     Dates: start: 20201116, end: 20201116
  44. TRAMADOL [Concomitant]
     Active Substance: TRAMADOL
     Indication: Pain
     Dosage: UNK
     Route: 065
     Dates: start: 20201105, end: 20201105
  45. TRAMADOL [Concomitant]
     Active Substance: TRAMADOL
     Dosage: UNK
     Route: 065
     Dates: start: 20201106, end: 20201106
  46. CALCIUM [Concomitant]
     Active Substance: CALCIUM
     Indication: Hypocalcaemia
     Dosage: UNK
     Route: 065
     Dates: start: 20201208, end: 20201210
  47. PIPERACILLIN SODIUM\TAZOBACTAM SODIUM [Concomitant]
     Active Substance: PIPERACILLIN SODIUM\TAZOBACTAM SODIUM
     Indication: Prophylaxis
     Dosage: UNK
     Route: 065
     Dates: start: 20201112, end: 20201112
  48. POTASSIUM CHLORIDE [Concomitant]
     Active Substance: POTASSIUM CHLORIDE
     Indication: Hypokalaemia
     Dosage: UNK
     Route: 065
     Dates: start: 20201028, end: 20201106
  49. POTASSIUM CHLORIDE [Concomitant]
     Active Substance: POTASSIUM CHLORIDE
     Dosage: UNK
     Route: 065
     Dates: start: 20201107, end: 20201107
  50. OMEPRAZOLE [Concomitant]
     Active Substance: OMEPRAZOLE
     Indication: Prophylaxis
     Dosage: UNK
     Route: 065
     Dates: end: 20201026
  51. CALCIUMGLUCONAT [Concomitant]
     Indication: Hypocalcaemia
     Dosage: UNK
     Route: 065
     Dates: start: 20201208, end: 20201210

REACTIONS (2)
  - Tumour lysis syndrome [Recovered/Resolved]
  - Renal failure [Recovered/Resolved]

NARRATIVE: CASE EVENT DATE: 20201111
